FAERS Safety Report 4432707-4 (Version None)
Quarter: 2004Q3

REPORT INFORMATION
  Report Type: 
  Country: None (occurrence: None)
  Receive Date: 20040818
  Receipt Date: 20040805
  Transmission Date: 20050211
  Serious: Yes (Other)
  Sender: FDA-Public Use
  Company Number: 200410269BBE

PATIENT
  Age: 4 Year
  Sex: Male

DRUGS (3)
  1. KOATE [Suspect]
     Indication: FACTOR VIII DEFICIENCY
     Dates: start: 19850101, end: 19860101
  2. KOATE-HT [Suspect]
     Indication: FACTOR VIII DEFICIENCY
     Dates: start: 19850101, end: 19860101
  3. KOATE-HT [Suspect]
     Indication: FACTOR VIII DEFICIENCY
     Dates: start: 19900101, end: 19910101

REACTIONS (2)
  - HEPATITIS C [None]
  - HIV INFECTION [None]
